FAERS Safety Report 8794919 (Version 2)
Quarter: 2013Q1

REPORT INFORMATION
  Report Type: Spontaneous
  Country: US (occurrence: US)
  Receive Date: 20120918
  Receipt Date: 20130111
  Transmission Date: 20140127
  Serious: No
  Sender: FDA-Public Use
  Company Number: US-009507513-1209USA002403

PATIENT
  Sex: Female
  Weight: 52.61 kg

DRUGS (1)
  1. IMPLANON [Suspect]
     Indication: CONTRACEPTION
     Dosage: 1 DF, UNK
     Route: 059
     Dates: start: 20111114

REACTIONS (6)
  - Uterine contractions abnormal [Unknown]
  - Abdominal pain lower [Unknown]
  - Metrorrhagia [Unknown]
  - Chest pain [Unknown]
  - Headache [Unknown]
  - Dizziness [Unknown]
